FAERS Safety Report 18232237 (Version 2)
Quarter: 2022Q2

REPORT INFORMATION
  Report Type: Report from Study
  Country: CA (occurrence: CA)
  Receive Date: 20200904
  Receipt Date: 20220415
  Transmission Date: 20220721
  Serious: Yes (Hospitalization, Other)
  Sender: FDA-Public Use
  Company Number: None

PATIENT
  Age: 83 Year
  Sex: Male

DRUGS (8)
  1. ATORVASTATIN [Interacting]
     Active Substance: ATORVASTATIN
     Indication: Dyslipidaemia
     Dosage: 1 EVERY 1 DAY
  2. SACUBITRIL\VALSARTAN [Interacting]
     Active Substance: SACUBITRIL\VALSARTAN
     Indication: Hypertension
  3. ASPIRIN [Concomitant]
     Active Substance: ASPIRIN
     Indication: Congestive cardiomyopathy
     Dosage: 1 EVERY 1 DAY
  4. GLICLAZIDE [Concomitant]
     Active Substance: GLICLAZIDE
     Indication: Congestive cardiomyopathy
     Dosage: 2 EVERY 1 DAY
  5. METFORMIN [Concomitant]
     Active Substance: METFORMIN HYDROCHLORIDE
     Indication: Congestive cardiomyopathy
     Dosage: 2 EVERY 1 DAY
  6. METOPROLOL [Concomitant]
     Active Substance: METOPROLOL
     Indication: Congestive cardiomyopathy
     Dosage: 2 EVERY 1 DAY
  7. SPIRONOLACTONE [Concomitant]
     Active Substance: SPIRONOLACTONE
     Indication: Congestive cardiomyopathy
     Dosage: 1 EVERY 1 DAY
  8. IRBESARTAN [Concomitant]
     Active Substance: IRBESARTAN
     Indication: Congestive cardiomyopathy
     Dosage: 1 EVERY 1 DAY

REACTIONS (4)
  - Drug interaction [Unknown]
  - Fall [Unknown]
  - Rhabdomyolysis [Recovered/Resolved]
  - Drug level increased [Recovered/Resolved]
